FAERS Safety Report 21545875 (Version 3)
Quarter: 2023Q1

REPORT INFORMATION
  Report Type: Report from Study
  Country: CO (occurrence: CO)
  Receive Date: 20221103
  Receipt Date: 20230327
  Transmission Date: 20230418
  Serious: Yes (Other)
  Sender: FDA-Public Use
  Company Number: CO-ABBVIE-4185626

PATIENT
  Sex: Male
  Weight: 59 kg

DRUGS (6)
  1. HUMIRA [Suspect]
     Active Substance: ADALIMUMAB
     Indication: Ankylosing spondylitis
     Dosage: STRENGTH: 40 MGK
     Route: 058
     Dates: start: 20190926, end: 20221008
  2. VITAMIN B6 [Concomitant]
     Active Substance: PYRIDOXINE HYDROCHLORIDE
     Indication: Product used for unknown indication
     Dosage: 1 TIME DAILY
     Route: 048
  3. VITAMIN D [Concomitant]
     Active Substance: VITAMIN D NOS
     Indication: Product used for unknown indication
     Dosage: 5 DROP
     Route: 048
  4. SYNTHROID [Concomitant]
     Active Substance: LEVOTHYROXINE SODIUM
     Indication: Postoperative care
     Dosage: 150 MILLIGRAM
     Route: 048
     Dates: start: 2014
  5. ERICOX [Concomitant]
     Indication: Pain
     Dosage: 1 TIME AT NIGHTS
     Route: 048
     Dates: start: 20221031
  6. Omega [Concomitant]
     Indication: Product used for unknown indication
     Dosage: 1 TIME DAILY
     Route: 048

REACTIONS (6)
  - Asphyxia [Not Recovered/Not Resolved]
  - Back pain [Recovering/Resolving]
  - Cardiac disorder [Not Recovered/Not Resolved]
  - Pulmonary tuberculosis [Unknown]
  - Neck pain [Recovering/Resolving]
  - Immunodeficiency [Unknown]

NARRATIVE: CASE EVENT DATE: 20220101
